FAERS Safety Report 4935881-6 (Version None)
Quarter: 2006Q1

REPORT INFORMATION
  Report Type: 
  Country: None (occurrence: None)
  Receive Date: 20060302
  Receipt Date: 20060208
  Transmission Date: 20060701
  Serious: Yes (Other)
  Sender: FDA-Public Use
  Company Number: US200602001951

PATIENT
  Age: 78 Year
  Sex: Female

DRUGS (3)
  1. FORTEO [Suspect]
     Indication: OSTEOPOROSIS
     Dates: start: 20050701
  2. FORTEO PEN (FORTEO PEN) PEN, DISPOSABLE [Concomitant]
  3. DILTIAZEM [Concomitant]

REACTIONS (8)
  - ASTHENIA [None]
  - BLOOD CALCIUM INCREASED [None]
  - CHEST PAIN [None]
  - FEELING ABNORMAL [None]
  - HEART RATE IRREGULAR [None]
  - LIVER FUNCTION TEST ABNORMAL [None]
  - OEDEMA PERIPHERAL [None]
  - PULMONARY OEDEMA [None]
